FAERS Safety Report 9524533 (Version 1)
Quarter: 2013Q3

REPORT INFORMATION
  Report Type: Spontaneous
  Country: US (occurrence: US)
  Receive Date: 20130916
  Receipt Date: 20130916
  Transmission Date: 20140515
  Serious: No
  Sender: FDA-Public Use
  Company Number: US-PFIZER INC-2013265592

PATIENT
  Sex: Female

DRUGS (4)
  1. CHANTIX [Suspect]
     Indication: SMOKING CESSATION THERAPY
     Dosage: 0.5 MG, DAILY
     Route: 048
     Dates: start: 2009
  2. CHANTIX [Suspect]
     Dosage: 1 MG, DAILY
     Route: 048
     Dates: end: 2009
  3. CHANTIX [Suspect]
     Dosage: 0.5 MG, DAILY
     Route: 048
     Dates: start: 2011, end: 2011
  4. CHANTIX [Suspect]
     Dosage: UNK
     Route: 048
     Dates: start: 2011

REACTIONS (1)
  - Drug ineffective [Unknown]
